FAERS Safety Report 5220682-4 (Version None)
Quarter: 2007Q1

REPORT INFORMATION
  Report Type: 
  Country: None (occurrence: None)
  Receive Date: 20070123
  Receipt Date: 20070112
  Transmission Date: 20070707
  Serious: Yes (Hospitalization)
  Sender: FDA-Public Use
  Company Number: 2007BI000862

PATIENT
  Age: 20 Year
  Sex: Female
  Weight: 72 kg

DRUGS (2)
  1. AVONEX [Suspect]
     Indication: MULTIPLE SCLEROSIS
     Dosage: QW;IM
     Route: 030
     Dates: start: 20060101
  2. CHEMOTHERAPY [Concomitant]

REACTIONS (15)
  - ANOREXIA [None]
  - ASTHENIA [None]
  - BALANCE DISORDER [None]
  - BLINDNESS UNILATERAL [None]
  - BLOOD GLUCOSE INCREASED [None]
  - CHEST PAIN [None]
  - DYSPNOEA [None]
  - HEADACHE [None]
  - INSOMNIA [None]
  - MULTIPLE SCLEROSIS RELAPSE [None]
  - MUSCULAR WEAKNESS [None]
  - NAUSEA [None]
  - PARAESTHESIA [None]
  - TACHYCARDIA [None]
  - TYMPANIC MEMBRANE DISORDER [None]
